FAERS Safety Report 15448951 (Version 1)
Quarter: 2018Q3

REPORT INFORMATION
  Report Type: Spontaneous
  Country: US (occurrence: US)
  Receive Date: 20180926
  Receipt Date: 20180926
  Transmission Date: 20181010
  Serious: Yes (Other)
  Sender: FDA-Public Use
  Company Number: None

PATIENT

DRUGS (1)
  1. ETOPOSIDE. [Suspect]
     Active Substance: ETOPOSIDE

REACTIONS (6)
  - Dyspnoea [None]
  - Erythema [None]
  - Chest discomfort [None]
  - Nausea [None]
  - Flushing [None]
  - Abdominal pain [None]

NARRATIVE: CASE EVENT DATE: 20180611
